FAERS Safety Report 5319580-7 (Version None)
Quarter: 2007Q2

REPORT INFORMATION
  Report Type: 
  Country: None (occurrence: None)
  Receive Date: 20070508
  Receipt Date: 20070427
  Transmission Date: 20071010
  Serious: Yes (Other)
  Sender: FDA-Public Use
  Company Number: US-PFIZER INC-2007034751

PATIENT
  Sex: Female
  Weight: 90.7 kg

DRUGS (1)
  1. NEURONTIN [Suspect]
     Indication: DIABETIC NEUROPATHY
     Dosage: DAILY DOSE:2100MG

REACTIONS (4)
  - CARDIAC OPERATION [None]
  - DRUG INEFFECTIVE [None]
  - HEART VALVE REPLACEMENT [None]
  - VASCULAR BYPASS GRAFT [None]
